FAERS Safety Report 6534181-0 (Version None)
Quarter: 2010Q1

REPORT INFORMATION
  Report Type: 
  Country: None (occurrence: None)
  Receive Date: 20100112
  Receipt Date: 20091231
  Transmission Date: 20100710
  Serious: Yes (Other)
  Sender: FDA-Public Use
  Company Number: US-TEVA-220143USA

PATIENT
  Sex: Male
  Weight: 108.96 kg

DRUGS (1)
  1. SALBUTAMOL SULFATE INHALATION, 0.09 MG [Suspect]
     Indication: WHEEZING
     Route: 055
     Dates: start: 20070101

REACTIONS (1)
  - HAEMOPTYSIS [None]
